FAERS Safety Report 8902175 (Version 6)
Quarter: 2013Q1

REPORT INFORMATION
  Report Type: Spontaneous
  Country: US (occurrence: US)
  Receive Date: 20121112
  Receipt Date: 20130321
  Transmission Date: 20140127
  Serious: Yes (Hospitalization, Other)
  Sender: FDA-Public Use
  Company Number: US-009507513-1206USA05392

PATIENT
  Sex: Female

DRUGS (9)
  1. FOSAMAX [Suspect]
     Indication: OSTEOPOROSIS
     Dosage: 5 MG, UNK
     Route: 048
     Dates: start: 20010808, end: 20020108
  2. FOSAMAX [Suspect]
     Dosage: 70 MG, QW
     Route: 048
     Dates: start: 20020725, end: 20080117
  3. ALENDRONATE SODIUM [Suspect]
     Indication: OSTEOPOROSIS
     Dosage: 70 MG, QW
     Route: 048
     Dates: start: 20070815, end: 20100712
  4. HORMONES (UNSPECIFIED) [Concomitant]
     Dosage: UNK
     Dates: start: 1998, end: 2008
  5. ASCORBIC ACID [Concomitant]
     Dosage: UNK
     Dates: start: 1999
  6. CALCIUM (UNSPECIFIED) (+) VITAMIN D (UNSPECIFIED) [Concomitant]
     Dosage: UNK
     Dates: start: 1999
  7. VITAMIN D (UNSPECIFIED) [Concomitant]
     Dosage: UNK
     Dates: start: 1999
  8. OMEGA-3 MARINE TRIGLYCERIDES [Concomitant]
     Dosage: UNK
     Dates: start: 1999
  9. ONE-A-DAY ENERGY FORMULA [Concomitant]
     Dosage: UNK
     Dates: start: 1999

REACTIONS (19)
  - Femur fracture [Recovering/Resolving]
  - Intramedullary rod insertion [Recovering/Resolving]
  - Anaemia postoperative [Recovered/Resolved]
  - Deep vein thrombosis [Unknown]
  - Hypotension [Recovered/Resolved]
  - Urinary tract infection [Unknown]
  - Femur fracture [Unknown]
  - Ovarian cystectomy [Unknown]
  - Hysterectomy [Unknown]
  - Inflammatory bowel disease [Unknown]
  - Rheumatoid arthritis [Unknown]
  - Endodontic procedure [Unknown]
  - Weight increased [Unknown]
  - Artificial crown procedure [Unknown]
  - Hyperlipidaemia [Unknown]
  - Intervertebral disc degeneration [Unknown]
  - Sciatica [Unknown]
  - Arthralgia [Unknown]
  - Nausea [Unknown]
